FAERS Safety Report 10203939 (Version 2)
Quarter: 2014Q2

REPORT INFORMATION
  Report Type: Spontaneous
  Country: US (occurrence: None)
  Receive Date: 20140523
  Receipt Date: 20140605
  Transmission Date: 20141212
  Serious: Yes (Hospitalization)
  Sender: FDA-Public Use
  Company Number: UNT-2014-000244

PATIENT
  Age: 17 Year
  Sex: Male
  Weight: 49.9 kg

DRUGS (19)
  1. REMODULIN [Suspect]
     Indication: COR PULMONALE CHRONIC
     Route: 041
     Dates: start: 20131226
  2. TRACLEER  (BOSENTAN) [Concomitant]
     Indication: PRODUCT USED FOR UNKNOWN INDICATION
  3. REVATIO [Concomitant]
     Indication: PRODUCT USED FOR UNKNOWN INDICATION
  4. ACETYLCYSTEINE [Concomitant]
  5. AMOXICILLIN [Concomitant]
  6. DEPLIN (CALCIUM LEVOMEFOLATE) [Concomitant]
  7. DESLORATADINE [Concomitant]
  8. DONEPEZIL [Concomitant]
  9. ESZOPICLONE [Concomitant]
  10. FUROSEMIDE [Concomitant]
  11. GLEEVEC (IMATINIB MESILATE) [Concomitant]
  12. LEVALBUTEROL (LEVOSALBUTAMOL) [Concomitant]
  13. MULTIVITAMIN (ASCORBIC ACID, CALCIUM PANTOTHENATE, ERGOCALCIFEROL, NICOTINAMIDE, PYRIDOXINE HYDROCHLORIDE, RETINOL, RIBOFLAVIN, THIAMINE HYDROCHLORIDE) [Concomitant]
  14. PANTOPRAZOLE [Concomitant]
  15. IRON COMPLEX (IRON) [Concomitant]
  16. POVIDONE IODINE (POVIDONE-IODINE) [Concomitant]
  17. SACCHAROMYCES BOULARDII (SACCHAROMYCES BOULARDII) [Concomitant]
  18. SERTRALINE (SERTRALINE) [Concomitant]
  19. SUCRALFATE (SUCRALFATE) UNKNOWN [Concomitant]

REACTIONS (14)
  - Gastrointestinal haemorrhage [None]
  - Gastrointestinal infection [None]
  - Portal hypertension [None]
  - Anaemia [None]
  - Intestinal polyp [None]
  - Pyrexia [None]
  - Chills [None]
  - Pain in extremity [None]
  - Arthralgia [None]
  - Diarrhoea [None]
  - Rectal haemorrhage [None]
  - Bacteraemia [None]
  - Gastric disorder [None]
  - Pulmonary oedema [None]
